FAERS Safety Report 13020172 (Version 1)
Quarter: 2016Q4

REPORT INFORMATION
  Report Type: Report from Study
  Country: US (occurrence: US)
  Receive Date: 20161212
  Receipt Date: 20161212
  Transmission Date: 20170207
  Serious: Yes (Hospitalization, Other)
  Sender: FDA-Public Use
  Company Number: US-TEVA-714799USA

PATIENT
  Age: 67 Year
  Sex: Female

DRUGS (1)
  1. COPAXONE [Suspect]
     Active Substance: GLATIRAMER ACETATE
     Indication: MULTIPLE SCLEROSIS
     Route: 058
     Dates: start: 20070217, end: 20161114

REACTIONS (7)
  - Chest discomfort [Unknown]
  - Troponin increased [Unknown]
  - Pyrexia [Recovered/Resolved]
  - Pericardial effusion [Unknown]
  - Hypersensitivity [Unknown]
  - Vasculitis [Unknown]
  - Rash pruritic [Recovering/Resolving]

NARRATIVE: CASE EVENT DATE: 201611
